FAERS Safety Report 19181777 (Version 1)
Quarter: 2021Q2

REPORT INFORMATION
  Report Type: Spontaneous
  Country: US (occurrence: US)
  Receive Date: 20210426
  Receipt Date: 20210426
  Transmission Date: 20210717
  Serious: No
  Sender: FDA-Public Use
  Company Number: US-SA-2021SA132683

PATIENT
  Age: 67 Year
  Sex: Female

DRUGS (1)
  1. DUPIXENT [Suspect]
     Active Substance: DUPILUMAB
     Indication: ASTHMA
     Dosage: 200 MG
     Dates: start: 2019

REACTIONS (10)
  - Flushing [Unknown]
  - Glossodynia [Unknown]
  - Dehydration [Unknown]
  - Dyspnoea [Unknown]
  - Hypertension [Unknown]
  - Pharyngeal swelling [Unknown]
  - Obstruction [Unknown]
  - Candida infection [Unknown]
  - Tongue geographic [Unknown]
  - Dry mouth [Unknown]
